FAERS Safety Report 5120639-8 (Version None)
Quarter: 2006Q4

REPORT INFORMATION
  Report Type: 
  Country: None (occurrence: None)
  Receive Date: 20061002
  Receipt Date: 20060918
  Transmission Date: 20070319
  Serious: Yes (Hospitalization)
  Sender: FDA-Public Use
  Company Number: 230007

PATIENT
  Age: 78 Year
  Sex: Male

DRUGS (5)
  1. RAPTIVA [Suspect]
     Indication: DRUG USE FOR UNKNOWN INDICATION
     Dosage: 1 UNK, 1/WEEK, SUBCUTANEOUS
     Route: 058
  2. SYMBICORT [Concomitant]
  3. THEOPHYLLINE [Concomitant]
  4. FEXOFENADINE (FEXOFENADINE HYDROCHLORIDE) [Concomitant]
  5. ABREVA [Concomitant]

REACTIONS (5)
  - DYSPNOEA [None]
  - HYPOTENSION [None]
  - METABOLIC ACIDOSIS [None]
  - PYREXIA [None]
  - RASH [None]
